FAERS Safety Report 5219917-3 (Version None)
Quarter: 2007Q1

REPORT INFORMATION
  Report Type: 
  Country: None (occurrence: None)
  Receive Date: 20070124
  Receipt Date: 20070124
  Transmission Date: 20070707
  Serious: Yes (Other)
  Sender: FDA-Public Use
  Company Number: None

PATIENT
  Age: 59 Year
  Sex: Male
  Weight: 93.4 kg

DRUGS (4)
  1. ADALAT [Suspect]
  2. IBUPROFEN [Concomitant]
  3. FISH OIL [Concomitant]
  4. LANSOPRAZOLE [Concomitant]

REACTIONS (1)
  - HEADACHE [None]
